FAERS Safety Report 15193214 (Version 1)
Quarter: 2018Q3

REPORT INFORMATION
  Report Type: Spontaneous
  Country: GB (occurrence: GB)
  Receive Date: 20180725
  Receipt Date: 20180725
  Transmission Date: 20181010
  Serious: Yes (Other)
  Sender: FDA-Public Use
  Company Number: GB-MACLEODS PHARMACEUTICALS US LTD-MAC2018015530

PATIENT

DRUGS (4)
  1. LEVOTHYROXINE. [Concomitant]
     Active Substance: LEVOTHYROXINE
     Indication: HYPOTHYROIDISM
     Dosage: 150 MICROGRAM, QD
     Route: 065
  2. OLANZAPINE. [Suspect]
     Active Substance: OLANZAPINE
     Indication: SCHIZOPHRENIA
     Dosage: UNK
     Route: 065
  3. ZUCLOPENTHIXOL DECANOATE [Suspect]
     Active Substance: ZUCLOPENTHIXOL DECANOATE
     Indication: SCHIZOPHRENIA
     Dosage: 600 MILLIGRAM, Q.W., DEPOT; TITRATED TO A DOSE OF 600 MG ONCE WEEKLY
     Route: 065
  4. OLANZAPINE. [Suspect]
     Active Substance: OLANZAPINE
     Dosage: 10 MILLIGRAM, BID,TITRATED TO A DOSE OF 10 MG TWICE DAILY
     Route: 048

REACTIONS (9)
  - Electrocardiogram QT prolonged [Unknown]
  - Headache [Unknown]
  - Chest pain [Unknown]
  - Arrhythmia [Unknown]
  - Gynaecomastia [Recovered/Resolved]
  - Hypertension [Unknown]
  - Type 2 diabetes mellitus [Recovering/Resolving]
  - Neuropathy peripheral [Recovered/Resolved]
  - Tachycardia [Unknown]
